FAERS Safety Report 23720985 (Version 1)
Quarter: 2024Q2

REPORT INFORMATION
  Report Type: Spontaneous
  Country: RU (occurrence: RU)
  Receive Date: 20240409
  Receipt Date: 20240409
  Transmission Date: 20240716
  Serious: Yes (Other)
  Sender: FDA-Public Use
  Company Number: RU-AstraZeneca-2024-173745

PATIENT

DRUGS (3)
  1. GOSERELIN [Suspect]
     Active Substance: GOSERELIN
     Indication: Product used for unknown indication
     Dosage: UNK
     Route: 058
  2. ZOLADEX [Suspect]
     Active Substance: GOSERELIN ACETATE
     Indication: Product used for unknown indication
     Dosage: UNK
     Route: 065
  3. ANASTROZOLE [Suspect]
     Active Substance: ANASTROZOLE
     Indication: Product used for unknown indication
     Dosage: UNK
     Route: 048

REACTIONS (7)
  - Ovarian cyst ruptured [Recovering/Resolving]
  - Ovarian cyst [Recovering/Resolving]
  - Nervous system disorder [Unknown]
  - Nasal dryness [Unknown]
  - Neuralgia [Unknown]
  - Hypoaesthesia [Unknown]
  - Sensitive skin [Unknown]
